FAERS Safety Report 8592716-0 (Version None)
Quarter: 2012Q3

REPORT INFORMATION
  Report Type: 
  Country: None (occurrence: None)
  Receive Date: 20120814
  Receipt Date: 20120709
  Transmission Date: 20120928
  Serious: No
  Sender: FDA-Public Use
  Company Number: US-COVIDIEN/TYCO HEALTHCARE/MALLINCKRODT-T201202569

PATIENT
  Sex: Male

DRUGS (16)
  1. FENTANYL [Suspect]
     Indication: NECK PAIN
     Dosage: 50 UG/HR, EVERY 2 DAYS
     Route: 062
     Dates: start: 20120501, end: 20120614
  2. VITAMIN B-12 [Concomitant]
     Dosage: UNK
  3. POTASSIUM [Concomitant]
     Dosage: UNK
  4. SPIRIVA [Concomitant]
     Dosage: UNK
  5. OXYGEN [Concomitant]
     Dosage: UNK
  6. QUALAQUIN [Concomitant]
     Dosage: UNK
  7. FOLIC ACID [Concomitant]
     Dosage: UNK
  8. LORAZEPAM [Concomitant]
     Dosage: UNK
  9. HYDROCODONE W/APAP                 /01554201/ [Concomitant]
     Dosage: UNK
  10. MULTIVITAMIN [Concomitant]
     Dosage: UNK
  11. CITALOPRAM [Concomitant]
     Dosage: UNK
  12. FENTANYL [Suspect]
     Indication: BACK PAIN
     Dosage: 75 UG/HR, EVERY 2 DAYS
     Route: 062
     Dates: start: 20120501, end: 20120614
  13. SUPER B COMPLEX                    /06817001/ [Concomitant]
     Dosage: UNK
  14. PROTONIX [Concomitant]
     Dosage: UNK
  15. LISINOPRIL AND HYDROCHLOROTHIAZIDE [Concomitant]
     Dosage: UNK
  16. ZOFRAN [Concomitant]
     Dosage: UNK

REACTIONS (4)
  - BALANCE DISORDER [None]
  - NAUSEA [None]
  - TONGUE DISORDER [None]
  - FEELING ABNORMAL [None]
